FAERS Safety Report 9000822 (Version 1)
Quarter: 2013Q1

REPORT INFORMATION
  Report Type: Spontaneous
  Country: US (occurrence: None)
  Receive Date: 20130103
  Receipt Date: 20130103
  Transmission Date: 20140127
  Serious: No
  Sender: FDA-Public Use
  Company Number: None

PATIENT
  Age: 72 Year
  Sex: Female
  Weight: 66.23 kg

DRUGS (1)
  1. NIASPAN [Suspect]

REACTIONS (5)
  - Chills [None]
  - Feeling hot [None]
  - Disorientation [None]
  - Hypersensitivity [None]
  - Chills [None]
